FAERS Safety Report 19378346 (Version 1)
Quarter: 2021Q2

REPORT INFORMATION
  Report Type: Spontaneous
  Country: GB (occurrence: GB)
  Receive Date: 20210605
  Receipt Date: 20210605
  Transmission Date: 20210717
  Serious: Yes (Life-Threatening)
  Sender: FDA-Public Use
  Company Number: GB-TEVA-2021-GB-1918566

PATIENT
  Age: 46 Year
  Sex: Male
  Weight: 94 kg

DRUGS (10)
  1. OLANZAPINE. [Concomitant]
     Active Substance: OLANZAPINE
     Dosage: 1 DOSAGE FORMS DAILY;
     Dates: start: 20201021
  2. CYCLIZINE [Concomitant]
     Active Substance: CYCLIZINE
     Dosage: 3 DOSAGE FORMS DAILY; / WHEN REQUIRED FOR ...UNIT DOSE : 1 DOSAGE FORMS
     Dates: start: 20210401, end: 20210416
  3. ATENOLOL. [Concomitant]
     Active Substance: ATENOLOL
     Indication: ILL-DEFINED DISORDER
     Dosage: 1 DOSAGE FORMS DAILY; EACH MORNING
     Dates: start: 20201021
  4. JEXT [Concomitant]
     Active Substance: EPINEPHRINE BITARTRATE
     Dosage: INJECT INTO THIGH THROUGH CLOTHES. COUNT TO 10 ...
     Dates: start: 20180925
  5. TRAMADOL. [Concomitant]
     Active Substance: TRAMADOL
     Dosage: TAKE 1 OR 2 EVERY 4?6 HRS
     Dates: start: 20210401, end: 20210415
  6. ZOLPIDEM [Suspect]
     Active Substance: ZOLPIDEM TARTRATE
     Dosage: 5 MG
     Route: 065
     Dates: start: 20210524
  7. DIAZEPAM. [Concomitant]
     Active Substance: DIAZEPAM
     Dosage: ISSUED BY PSYCHIATRY
     Dates: start: 20210524
  8. TRAZODONE [Concomitant]
     Active Substance: TRAZODONE HYDROCHLORIDE
     Dosage: 1 DOSAGE FORMS DAILY; EACH NIGHT
     Dates: start: 20201021
  9. LANSOPRAZOLE. [Concomitant]
     Active Substance: LANSOPRAZOLE
     Dosage: 1 DOSAGE FORMS DAILY;
     Dates: start: 20210125
  10. PRIADEL [Concomitant]
     Active Substance: LITHIUM
     Dosage: 3 DOSAGE FORMS DAILY; AT NIGHT
     Dates: start: 20201021

REACTIONS (1)
  - Somnolence [Recovered/Resolved]

NARRATIVE: CASE EVENT DATE: 20210524
